FAERS Safety Report 7689053-5 (Version None)
Quarter: 2011Q3

REPORT INFORMATION
  Report Type: 
  Country: None (occurrence: None)
  Receive Date: 20110817
  Receipt Date: 20110816
  Transmission Date: 20111222
  Serious: Yes (Hospitalization)
  Sender: FDA-Public Use
  Company Number: US-PFIZER INC-2011188755

PATIENT
  Sex: Male
  Weight: 79.365 kg

DRUGS (3)
  1. DAYPRO [Suspect]
     Indication: BACK PAIN
     Dosage: UNK, 2X/DAY
     Dates: start: 20110701, end: 20110101
  2. TRAZODONE [Concomitant]
     Indication: SLEEP DISORDER
     Dosage: 50 MG, DAILY
     Route: 048
  3. WELLBUTRIN [Concomitant]
     Indication: DEPRESSION
     Dosage: 450 MG, DAILY
     Route: 048

REACTIONS (5)
  - PYREXIA [None]
  - MALAISE [None]
  - RASH [None]
  - VIRAL INFECTION [None]
  - ASTHENIA [None]
